FAERS Safety Report 6794191-5 (Version None)
Quarter: 2010Q2

REPORT INFORMATION
  Report Type: 
  Country: None (occurrence: None)
  Receive Date: 20100624
  Receipt Date: 20080409
  Transmission Date: 20101027
  Serious: No
  Sender: FDA-Public Use
  Company Number: US-PFIZER INC-ENC200800075

PATIENT
  Sex: Female

DRUGS (12)
  1. ARGATROBAN [Suspect]
     Indication: HEPARIN-INDUCED THROMBOCYTOPENIA
     Dosage: FREQUENCY:  HR
     Route: 042
  2. DILTIAZEM [Concomitant]
  3. WARFARIN SODIUM [Concomitant]
  4. FOLIC ACID [Concomitant]
  5. POTASSIUM CHLORIDE [Concomitant]
  6. FUROSEMIDE [Concomitant]
  7. METOPROLOL TARTRATE [Concomitant]
  8. GABAPENTIN [Concomitant]
  9. POLYSACCHARIDE-IRON COMPLEX [Concomitant]
  10. LEVOTHYROXINE SODIUM [Concomitant]
  11. VANCOMYCIN [Concomitant]
  12. SERTRALINE HCL [Concomitant]

REACTIONS (1)
  - COAGULATION TIME PROLONGED [None]
